FAERS Safety Report 10056668 (Version 1)
Quarter: 2014Q2

REPORT INFORMATION
  Report Type: Spontaneous
  Country: EC (occurrence: EC)
  Receive Date: 20140403
  Receipt Date: 20140403
  Transmission Date: 20141212
  Serious: Yes (Death)
  Sender: FDA-Public Use
  Company Number: EC-PFIZER INC-2014094072

PATIENT
  Age: 82 Year
  Sex: Female

DRUGS (1)
  1. LIPITOR [Suspect]
     Indication: CARDIOVASCULAR EVENT PROPHYLAXIS
     Dosage: 40 MG, ONCE A DAY
     Route: 048

REACTIONS (2)
  - Renal failure [Fatal]
  - Hepatic failure [Fatal]
